FAERS Safety Report 10388884 (Version 1)
Quarter: 2014Q1

REPORT INFORMATION
  Report Type: Spontaneous
  Country: US (occurrence: None)
  Receive Date: 20140306
  Receipt Date: 20140306
  Transmission Date: 20141002
  Serious: Yes (Hospitalization, Other)
  Sender: FDA-Public Use
  Company Number: 163-21880-13072099

PATIENT
  Age: 77 Year
  Sex: Female

DRUGS (1)
  1. REVLIMID (LENALIDOMIDE) (25 MILLIGRAM, CAPSULES) [Suspect]
     Indication: PLASMA CELL MYELOMA
     Dosage: 21 IN 21 D
     Route: 048
     Dates: start: 20130514, end: 20130625

REACTIONS (8)
  - Fall [None]
  - Dehydration [None]
  - Urinary tract infection [None]
  - Nausea [None]
  - Vomiting [None]
  - Confusional state [None]
  - Depression [None]
  - Asthenia [None]
